FAERS Safety Report 5672159-X (Version None)
Quarter: 2008Q1

REPORT INFORMATION
  Report Type: 
  Country: None (occurrence: None)
  Receive Date: 20080319
  Receipt Date: 20080310
  Transmission Date: 20080703
  Serious: Yes (Hospitalization, Other)
  Sender: FDA-Public Use
  Company Number: JP-JNJFOC-20080202046

PATIENT
  Sex: Male
  Weight: 68 kg

DRUGS (15)
  1. INFLIXIMAB [Suspect]
     Indication: RHEUMATOID ARTHRITIS
     Route: 042
  2. RHEUMATREX [Suspect]
     Route: 048
  3. RHEUMATREX [Suspect]
     Indication: RHEUMATOID ARTHRITIS
     Route: 048
  4. FOLIAMIN [Concomitant]
     Indication: FOLATE DEFICIENCY
     Dosage: START DATE: PRIOR TO 14-DEC-2005
     Route: 048
  5. PREDONINE [Concomitant]
     Indication: RHEUMATOID ARTHRITIS
     Dosage: START DATE: PRIOR TO 14-DEC-2005
     Route: 048
  6. PARIET [Concomitant]
     Indication: PROPHYLAXIS
     Dosage: START DATE: PRIOR TO 14-DEC-2005
     Route: 048
  7. VOLTAREN [Concomitant]
     Indication: RHEUMATOID ARTHRITIS
     Dosage: START DATE: PRIOR TO 14-DEC-2005
     Route: 048
  8. CYTOTEC [Concomitant]
     Indication: GASTRITIS
     Dosage: DOSE 200RG
     Route: 048
  9. YODEL S [Concomitant]
     Indication: CONSTIPATION
     Dosage: EACH DOSE
     Route: 048
  10. LAMISIL [Concomitant]
     Indication: DYSHIDROSIS
     Route: 061
  11. LAMISIL [Concomitant]
     Indication: TINEA PEDIS
     Dosage: ADEQUATE DOSE
     Route: 061
  12. ATLANT [Concomitant]
     Indication: DYSHIDROSIS
     Route: 061
  13. ATLANT [Concomitant]
     Indication: TINEA PEDIS
     Route: 061
  14. UREPEARL [Concomitant]
     Indication: DYSHIDROSIS
     Dosage: ADEQUATE DOSE
     Route: 061
  15. GASTER D [Concomitant]
     Indication: GASTRITIS
     Route: 048

REACTIONS (2)
  - GASTROENTERITIS STAPHYLOCOCCAL [None]
  - SMALL CELL LUNG CANCER STAGE UNSPECIFIED [None]
